FAERS Safety Report 7632362-6 (Version None)
Quarter: 2011Q3

REPORT INFORMATION
  Report Type: 
  Country: None (occurrence: None)
  Receive Date: 20110725
  Receipt Date: 20100818
  Transmission Date: 20111222
  Serious: Yes (Death)
  Sender: FDA-Public Use
  Company Number: US-BRISTOL-MYERS SQUIBB COMPANY-15245137

PATIENT
  Age: 94 Year
  Sex: Female

DRUGS (2)
  1. LOVENOX [Suspect]
  2. COUMADIN [Suspect]
     Route: 065

REACTIONS (1)
  - HAEMORRHAGE [None]
